FAERS Safety Report 6354019-4 (Version None)
Quarter: 2009Q3

REPORT INFORMATION
  Report Type: 
  Country: None (occurrence: None)
  Receive Date: 20090914
  Receipt Date: 20090903
  Transmission Date: 20100115
  Serious: Yes (Hospitalization)
  Sender: FDA-Public Use
  Company Number: US-CELGENEUS-163-21880-09090431

PATIENT
  Sex: Male

DRUGS (3)
  1. REVLIMID [Suspect]
     Indication: MULTIPLE MYELOMA
     Route: 048
     Dates: start: 20071101, end: 20090601
  2. REVLIMID [Suspect]
     Route: 048
     Dates: start: 20070201, end: 20070801
  3. REVLIMID [Suspect]
     Route: 048
     Dates: start: 20070801, end: 20071101

REACTIONS (1)
  - HIP ARTHROPLASTY [None]
